FAERS Safety Report 20868388 (Version 1)
Quarter: 2022Q2

REPORT INFORMATION
  Report Type: Spontaneous
  Country: US (occurrence: US)
  Receive Date: 20220524
  Receipt Date: 20220524
  Transmission Date: 20220721
  Serious: Yes (Other)
  Sender: FDA-Public Use
  Company Number: US-COOPERSURGICAL, INC.-US-2022CPS001677

PATIENT
  Age: 22 Year
  Sex: Female
  Weight: 74.376 kg

DRUGS (1)
  1. PARAGARD T 380A [Suspect]
     Active Substance: COPPER
     Indication: Product used for unknown indication
     Dosage: UNK
     Route: 015
     Dates: start: 20211117, end: 20220512

REACTIONS (7)
  - Haemorrhagic ovarian cyst [Unknown]
  - Pregnancy with contraceptive device [Not Recovered/Not Resolved]
  - Abnormal uterine bleeding [Unknown]
  - Dysmenorrhoea [Unknown]
  - Intermenstrual bleeding [Unknown]
  - Device dislocation [Recovered/Resolved]
  - Drug ineffective [Unknown]

NARRATIVE: CASE EVENT DATE: 20220102
